FAERS Safety Report 10419878 (Version 1)
Quarter: 2014Q2

REPORT INFORMATION
  Report Type: Spontaneous
  Country: US (occurrence: None)
  Receive Date: 20140627
  Receipt Date: 20140627
  Transmission Date: 20141212
  Serious: Yes (Other)
  Sender: FDA-Public Use
  Company Number: CABO-14004259

PATIENT
  Age: 61 Year
  Sex: Male

DRUGS (1)
  1. COMETRIQ (CABOZANTINIB) CAPSULE [Suspect]
     Indication: NEOPLASM MALIGNANT
     Route: 048

REACTIONS (5)
  - Hepatic enzyme increased [None]
  - Stomatitis [None]
  - Dysphonia [None]
  - Dehydration [None]
  - Off label use [None]
